FAERS Safety Report 8990915 (Version 1)
Quarter: 2012Q4

REPORT INFORMATION
  Report Type: Spontaneous
  Country: US (occurrence: None)
  Receive Date: 20121227
  Receipt Date: 20121227
  Transmission Date: 20130627
  Serious: Yes (Other)
  Sender: FDA-Public Use
  Company Number: None

PATIENT
  Age: 50 Year
  Sex: Female
  Weight: 88.45 kg

DRUGS (1)
  1. METHIMAZOLE [Suspect]
     Indication: HYPOTHYROIDISM
     Dosage: 1   one a day po
     Route: 048
     Dates: start: 20120515, end: 20121019

REACTIONS (7)
  - Arthralgia [None]
  - Back pain [None]
  - Pain [None]
  - Gait disturbance [None]
  - Myalgia [None]
  - Neuralgia [None]
  - Lupus-like syndrome [None]
